FAERS Safety Report 8861943 (Version 1)
Quarter: 2012Q4

REPORT INFORMATION
  Report Type: Spontaneous
  Country: DE (occurrence: None)
  Receive Date: 20121024
  Receipt Date: 20121024
  Transmission Date: 20130627
  Serious: Yes (Other)
  Sender: FDA-Public Use
  Company Number: JPI-P-023818

PATIENT
  Age: 33 Year
  Sex: Male

DRUGS (4)
  1. XYREM [Suspect]
     Indication: NARCOLEPSY
     Route: 048
     Dates: start: 201111
  2. XYREM [Suspect]
     Indication: NARCOLEPSY
     Dosage: 9 gm
     Route: 048
     Dates: end: 201207
  3. MODAFINIL [Concomitant]
  4. SIMVASTATIN [Concomitant]

REACTIONS (2)
  - Cheyne-Stokes respiration [None]
  - Sleep apnoea syndrome [None]
